FAERS Safety Report 25751268 (Version 2)
Quarter: 2025Q3

REPORT INFORMATION
  Report Type: Report from Study
  Country: CA (occurrence: CA)
  Receive Date: 20250902
  Receipt Date: 20250903
  Transmission Date: 20251020
  Serious: Yes (Hospitalization)
  Sender: PFIZER
  Company Number: CA-PFIZER INC-202500172772

PATIENT
  Age: 33 Year
  Sex: Female

DRUGS (7)
  1. ADALIMUMAB [Suspect]
     Active Substance: ADALIMUMAB
     Indication: Hidradenitis
  2. ADALIMUMAB [Suspect]
     Active Substance: ADALIMUMAB
     Indication: Hidradenitis
  3. MELATONIN [Concomitant]
     Active Substance: MELATONIN
     Dosage: 10 MG, 1 EVERY 1 DAY
  4. MINOCYCLINE [Concomitant]
     Active Substance: MINOCYCLINE HYDROCHLORIDE
     Dosage: 100 MG, 1 EVERY 1 DAY
  5. TRAZODONE [Concomitant]
     Active Substance: TRAZODONE HYDROCHLORIDE
     Dosage: 75 MG, 1 EVERY 1 DAY
  6. VITAMIN D NOS [Concomitant]
     Active Substance: CHOLECALCIFEROL\ERGOCALCIFEROL
  7. VITAMINS NOS [Concomitant]
     Active Substance: VITAMINS
     Dosage: UNK,  1 EVERY 1 DAY

REACTIONS (3)
  - Hypoacusis [Unknown]
  - Otitis externa [Unknown]
  - Off label use [Unknown]
